FAERS Safety Report 8477860-0 (Version None)
Quarter: 2012Q2

REPORT INFORMATION
  Report Type: 
  Country: None (occurrence: None)
  Receive Date: 20120629
  Receipt Date: 20120625
  Transmission Date: 20120825
  Serious: Yes (Hospitalization)
  Sender: FDA-Public Use
  Company Number: FR-PFIZER INC-2012151536

PATIENT
  Age: 66 Year
  Sex: Female

DRUGS (8)
  1. CELEBREX [Suspect]
     Indication: ARTHRALGIA
     Dosage: UNK
     Route: 048
     Dates: start: 20120301, end: 20120511
  2. LEVOTHYROXINE SODIUM [Concomitant]
  3. FLUTICASONE PROPIONATE/SALMETEROL [Concomitant]
  4. NASONEX [Concomitant]
  5. SINGULAIR [Concomitant]
  6. ALLOPURINOL [Suspect]
     Indication: HYPERURICAEMIA
     Dosage: UNK
     Dates: start: 20120301, end: 20120511
  7. CRESTOR [Concomitant]
  8. INDAPAMIDE [Concomitant]

REACTIONS (7)
  - BURNING SENSATION [None]
  - RASH [None]
  - PRURITUS [None]
  - CELL DEATH [None]
  - FACE OEDEMA [None]
  - DRUG RASH WITH EOSINOPHILIA AND SYSTEMIC SYMPTOMS [None]
  - RENAL FAILURE ACUTE [None]
